FAERS Safety Report 9346146 (Version 1)
Quarter: 2013Q2

REPORT INFORMATION
  Report Type: Report from Study
  Country: AU (occurrence: AU)
  Receive Date: 20130613
  Receipt Date: 20130613
  Transmission Date: 20140414
  Serious: Yes (Other)
  Sender: FDA-Public Use
  Company Number: AU-ROCHE-1235981

PATIENT
  Sex: Male

DRUGS (2)
  1. LUCENTIS [Suspect]
     Indication: AGE-RELATED MACULAR DEGENERATION
     Route: 050
     Dates: start: 20120525
  2. WARFARIN [Concomitant]

REACTIONS (5)
  - Deafness [Unknown]
  - Glaucoma [Unknown]
  - Cataract [Unknown]
  - Erythema [Unknown]
  - Vision blurred [Unknown]
